FAERS Safety Report 4353659-1 (Version None)
Quarter: 2004Q2

REPORT INFORMATION
  Report Type: 
  Country: None (occurrence: None)
  Receive Date: 20040430
  Receipt Date: 20040420
  Transmission Date: 20050107
  Serious: Yes (Life-Threatening, Hospitalization)
  Sender: FDA-Public Use
  Company Number: 04P-044-0258090-00

PATIENT

DRUGS (2)
  1. ULTANE [Suspect]
     Indication: ANAESTHESIA
     Dates: start: 20040324, end: 20040324
  2. SUXAMETHONIUM [Concomitant]

REACTIONS (1)
  - COMA HEPATIC [None]
